FAERS Safety Report 25007406 (Version 4)
Quarter: 2025Q2

REPORT INFORMATION
  Report Type: Spontaneous
  Country: ES (occurrence: ES)
  Receive Date: 20250225
  Receipt Date: 20250404
  Transmission Date: 20250717
  Serious: Yes (Other)
  Sender: BOEHRINGER INGELHEIM
  Company Number: ES-BoehringerIngelheim-2025-BI-010609

PATIENT
  Age: 75 Year
  Sex: Female

DRUGS (3)
  1. TELMISARTAN [Suspect]
     Active Substance: TELMISARTAN
     Indication: Hypertension
  2. ASPIRIN [Suspect]
     Active Substance: ASPIRIN
     Indication: Thrombosis prophylaxis
     Dates: start: 20200101, end: 202502
  3. ASPIRIN [Suspect]
     Active Substance: ASPIRIN
     Dates: start: 202502, end: 20250227

REACTIONS (4)
  - Renal impairment [Unknown]
  - Hypertension [Unknown]
  - Renal injury [Not Recovered/Not Resolved]
  - Labelled drug-drug interaction issue [Unknown]

NARRATIVE: CASE EVENT DATE: 20250101
